FAERS Safety Report 8606101-6 (Version None)
Quarter: 2012Q3

REPORT INFORMATION
  Report Type: 
  Country: None (occurrence: None)
  Receive Date: 20120820
  Receipt Date: 20120807
  Transmission Date: 20120928
  Serious: Yes (Hospitalization)
  Sender: FDA-Public Use
  Company Number: FR-ROCHE-1099060

PATIENT
  Age: 70 Year
  Sex: Female

DRUGS (10)
  1. HUMALOG [Concomitant]
  2. FUROSEMIDE [Concomitant]
     Dosage: 100 LP
  3. PREDNISOLONE [Concomitant]
  4. CLONAZEPAM [Suspect]
     Indication: PAIN
     Route: 048
     Dates: start: 20120420
  5. ACETAMINOPHEN W/ CODEINE [Suspect]
     Indication: PAIN
     Route: 048
     Dates: end: 20120420
  6. FLECAINIDE ACETATE [Concomitant]
  7. CETIRIZINE HCL [Suspect]
     Indication: PAIN
     Route: 048
  8. ACETAMINOPHEN AND CODEINE PHOSPHATE [Suspect]
     Indication: PAIN
     Route: 048
     Dates: start: 20120420, end: 20120519
  9. LEVOTHYROXINE SODIUM [Concomitant]
  10. LANTUS [Concomitant]

REACTIONS (2)
  - CYTOLYTIC HEPATITIS [None]
  - CHOLESTASIS [None]
